FAERS Safety Report 8989208 (Version 1)
Quarter: 2012Q4

REPORT INFORMATION
  Report Type: Spontaneous
  Country: US (occurrence: None)
  Receive Date: 20121219
  Receipt Date: 20121219
  Transmission Date: 20130627
  Serious: Yes (Death, Other)
  Sender: FDA-Public Use
  Company Number: 2012AP004272

PATIENT
  Age: 19 Year
  Sex: Female

DRUGS (5)
  1. LEVETIRACETAM TABLETS 1000MG (LEVETIRACETAM) [Suspect]
     Indication: DRUG USE FOR UNKNOWN INDICATION
  2. CITALOPRAM [Suspect]
     Indication: DRUG USE FOR UNKNOWN INDICATION
  3. LAMOTRIGINE [Suspect]
     Indication: DRUG USE FOR UNKNOWN INDICATION
  4. ZONISAMIDE [Suspect]
     Indication: DRUG USE FOR UNKNOWN INDICATION
  5. DIAZEPAM [Suspect]
     Indication: DRUG USE FOR UNKNOWN INDICATION

REACTIONS (5)
  - Convulsion [None]
  - Toxicity to various agents [None]
  - Drug level below therapeutic [None]
  - Unresponsive to stimuli [None]
  - Loss of consciousness [None]
